FAERS Safety Report 4519437-5 (Version None)
Quarter: 2004Q4

REPORT INFORMATION
  Report Type: 
  Country: None (occurrence: None)
  Receive Date: 20041202
  Receipt Date: 20041119
  Transmission Date: 20050328
  Serious: Yes (Hospitalization)
  Sender: FDA-Public Use
  Company Number: 2004098199

PATIENT
  Age: 39 Year
  Sex: Male
  Weight: 84 kg

DRUGS (6)
  1. IRINOTECAN HYDROCHLORIDE  (IRINOTECAN HYDROCHLORIDE) [Suspect]
     Indication: GASTRIC CANCER
     Dosage: 160 MG (CYCLE 2), INTRAVENOUS
     Route: 042
     Dates: start: 20040907, end: 20040914
  2. FLUOROURACIL [Suspect]
     Indication: GASTRIC CANCER
     Dosage: 4400 MG (CYCLE 2), INTRAVENOUS
     Route: 042
     Dates: end: 20040914
  3. PANTOPRAZOLE SODIUM [Concomitant]
  4. DOMPERIDONE [Concomitant]
  5. MORPHINE SULFATE [Concomitant]
  6. LEUCOVORIN CALCIUM [Suspect]
     Indication: GASTRIC CANCER
     Dosage: 30 MG (CYCLE 2), INTRAVENOUS
     Route: 042
     Dates: start: 20040907, end: 20040907

REACTIONS (2)
  - ABDOMINAL PAIN [None]
  - DIARRHOEA [None]
